FAERS Safety Report 26069470 (Version 1)
Quarter: 2025Q4

REPORT INFORMATION
  Report Type: Report from Study
  Country: CA (occurrence: CA)
  Receive Date: 20251120
  Receipt Date: 20251120
  Transmission Date: 20260118
  Serious: Yes (Other)
  Sender: RANBAXY
  Company Number: CA-MIMS-SUN-2022-CAN-26938

PATIENT
  Sex: Male

DRUGS (1)
  1. TILDRAKIZUMAB [Suspect]
     Active Substance: TILDRAKIZUMAB
     Indication: Psoriasis
     Dosage: 100 MILLIGRAM, Q12WKS
     Route: 058
     Dates: start: 20220126

REACTIONS (11)
  - Psoriatic arthropathy [Unknown]
  - Headache [Unknown]
  - Self-medication [Unknown]
  - Malaise [Unknown]
  - Inappropriate schedule of product administration [Unknown]
  - Illness [Unknown]
  - Respiratory disorder [Unknown]
  - Product storage error [Unknown]
  - Product dose omission issue [Unknown]
  - Gastrointestinal disorder [Unknown]
  - Psoriasis [Unknown]
